FAERS Safety Report 5865781-9 (Version None)
Quarter: 2008Q3

REPORT INFORMATION
  Report Type: 
  Country: None (occurrence: None)
  Receive Date: 20080829
  Receipt Date: 20080826
  Transmission Date: 20090109
  Serious: Yes (Hospitalization)
  Sender: FDA-Public Use
  Company Number: PHHY2008IE19343

PATIENT
  Age: 54 Year
  Sex: Male

DRUGS (2)
  1. TEGRETOL [Suspect]
     Indication: CONVULSION
     Dosage: 100 MG, TID
  2. SOLPADOL [Concomitant]

REACTIONS (2)
  - HEPATITIS ALCOHOLIC [None]
  - LIVER FUNCTION TEST ABNORMAL [None]
